FAERS Safety Report 24762213 (Version 2)
Quarter: 2025Q1

REPORT INFORMATION
  Report Type: Spontaneous
  Country: JP (occurrence: JP)
  Receive Date: 20241221
  Receipt Date: 20250211
  Transmission Date: 20250409
  Serious: Yes (Hospitalization)
  Sender: ABBVIE
  Company Number: JP-ABBVIE-6054226

PATIENT
  Sex: Male

DRUGS (1)
  1. SKYRIZI [Suspect]
     Active Substance: RISANKIZUMAB-RZAA
     Indication: Crohn^s disease
     Route: 042
     Dates: start: 20240930

REACTIONS (1)
  - Osteomyelitis [Unknown]

NARRATIVE: CASE EVENT DATE: 20241216
